FAERS Safety Report 4736540-5 (Version None)
Quarter: 2005Q3

REPORT INFORMATION
  Report Type: 
  Country: None (occurrence: None)
  Receive Date: 20050808
  Receipt Date: 20050726
  Transmission Date: 20060218
  Serious: Yes (Other)
  Sender: FDA-Public Use
  Company Number: 2005AP04218

PATIENT
  Age: 21579 Day
  Sex: Male

DRUGS (13)
  1. SEROQUEL [Suspect]
     Route: 048
     Dates: start: 20050511, end: 20050512
  2. PRAVASTATIN SODIUM [Concomitant]
  3. MAGMIN [Concomitant]
  4. RAMIPRIL [Concomitant]
  5. DIGOXIN [Concomitant]
  6. TEMAZEPAM [Concomitant]
  7. SOTALOL HCL [Concomitant]
  8. SLOW-K [Concomitant]
  9. FUROSEMIDE [Concomitant]
  10. CLEXANE [Concomitant]
  11. WARFARIN SODIUM [Concomitant]
  12. QUININE SULFATE [Concomitant]
  13. SPIRONOLACTONE [Concomitant]

REACTIONS (8)
  - CARDIAC FAILURE [None]
  - CHEYNE-STOKES RESPIRATION [None]
  - CONFUSIONAL STATE [None]
  - DELIRIUM [None]
  - DYSARTHRIA [None]
  - HALLUCINATION [None]
  - HYPOTENSION [None]
  - SEDATION [None]
